FAERS Safety Report 12279059 (Version 2)
Quarter: 2016Q4

REPORT INFORMATION
  Report Type: Report from Study
  Country: US (occurrence: US)
  Receive Date: 20160418
  Receipt Date: 20161229
  Transmission Date: 20170207
  Serious: Yes (Other)
  Sender: FDA-Public Use
  Company Number: US-AMGEN-USASL2016047238

PATIENT
  Age: 48 Year
  Sex: Female

DRUGS (2)
  1. ENBREL [Suspect]
     Active Substance: ETANERCEPT
     Indication: RHEUMATOID ARTHRITIS
     Dosage: 50 MG, QWK
     Route: 058
     Dates: start: 20160412, end: 2016
  2. ENBREL [Suspect]
     Active Substance: ETANERCEPT
     Dosage: UNK
     Route: 065
     Dates: start: 20161220

REACTIONS (9)
  - Sinus disorder [Unknown]
  - Wrong technique in product usage process [Unknown]
  - Hypotonia [Unknown]
  - Headache [Unknown]
  - Viral infection [Unknown]
  - Bronchitis [Recovered/Resolved]
  - Rheumatoid arthritis [Unknown]
  - Stress [Unknown]
  - Underdose [Unknown]

NARRATIVE: CASE EVENT DATE: 2016
